FAERS Safety Report 4295835-2 (Version None)
Quarter: 2004Q1

REPORT INFORMATION
  Report Type: 
  Country: None (occurrence: None)
  Receive Date: 20040216
  Receipt Date: 20031118
  Transmission Date: 20041129
  Serious: No
  Sender: FDA-Public Use
  Company Number: US-GLAXOSMITHKLINE-A0440195A

PATIENT
  Age: 35 Year
  Sex: Female

DRUGS (2)
  1. LAMICTAL [Suspect]
     Indication: EPILEPSY
     Route: 048
     Dates: start: 20030701
  2. DILANTIN [Concomitant]
     Route: 065

REACTIONS (7)
  - ANXIETY [None]
  - DEPRESSED MOOD [None]
  - HEADACHE [None]
  - HYPOGLYCAEMIA [None]
  - PARAESTHESIA [None]
  - SKIN TIGHTNESS [None]
  - TREMOR [None]
